FAERS Safety Report 11078345 (Version 1)
Quarter: 2015Q2

REPORT INFORMATION
  Report Type: Spontaneous
  Country: IN (occurrence: None)
  Receive Date: 20150428
  Receipt Date: 20150428
  Transmission Date: 20150821
  Serious: Yes (Other)
  Sender: FDA-Public Use
  Company Number: UCM201504-000252

PATIENT

DRUGS (2)
  1. CLONIDINE HCL (CONIDINE HCL) (CLONIDINE HCL) [Suspect]
     Active Substance: CLONIDINE HYDROCHLORIDE
     Indication: ANALGESIC THERAPY
     Route: 037
  2. HYPERBARIC BUPIVACAINE (BUPIVACAINE HCL) (BUPIVACAINE HCL) [Suspect]
     Active Substance: BUPIVACAINE
     Indication: ANALGESIC THERAPY

REACTIONS (4)
  - Bradypnoea [None]
  - Hypotension [None]
  - Bradycardia [None]
  - Off label use [None]
